FAERS Safety Report 6671822-1 (Version None)
Quarter: 2010Q2

REPORT INFORMATION
  Report Type: 
  Country: None (occurrence: None)
  Receive Date: 20100407
  Receipt Date: 20100329
  Transmission Date: 20101027
  Serious: Yes (Other)
  Sender: FDA-Public Use
  Company Number: US-PFIZER INC-2010041296

PATIENT
  Sex: Female
  Weight: 63 kg

DRUGS (1)
  1. DEPO-PROVERA [Suspect]
     Dosage: 150 MG, UNK

REACTIONS (2)
  - OSTEOPENIA [None]
  - OSTEOPOROSIS [None]
